FAERS Safety Report 9511769 (Version 1)
Quarter: 2013Q3

REPORT INFORMATION
  Report Type: Spontaneous
  Country: US (occurrence: None)
  Receive Date: 20130909
  Receipt Date: 20130909
  Transmission Date: 20140515
  Serious: Yes (Other)
  Sender: FDA-Public Use
  Company Number: None

PATIENT
  Age: 61 Year
  Sex: Female
  Weight: 58.06 kg

DRUGS (3)
  1. WELCHOL [Suspect]
     Indication: BLOOD CHOLESTEROL INCREASED
     Dosage: 3 TWICE DAILY TAKEN BY MOUTH
     Route: 048
     Dates: start: 20130822, end: 20130906
  2. WELCHOL [Suspect]
     Indication: LOW DENSITY LIPOPROTEIN INCREASED
     Dosage: 3 TWICE DAILY TAKEN BY MOUTH
     Route: 048
     Dates: start: 20130822, end: 20130906
  3. WELCHOL [Suspect]
     Indication: BLOOD TRIGLYCERIDES INCREASED
     Dosage: 3 TWICE DAILY TAKEN BY MOUTH
     Route: 048
     Dates: start: 20130822, end: 20130906

REACTIONS (1)
  - Myalgia [None]
